FAERS Safety Report 5383993-8 (Version None)
Quarter: 2007Q3

REPORT INFORMATION
  Report Type: 
  Country: None (occurrence: None)
  Receive Date: 20070711
  Receipt Date: 20070629
  Transmission Date: 20080115
  Serious: Yes (Other)
  Sender: FDA-Public Use
  Company Number: US-SHR-US-2007-021843

PATIENT
  Age: 36 Year
  Sex: Female
  Weight: 76.19 kg

DRUGS (6)
  1. BETASERON [Suspect]
     Indication: RELAPSING-REMITTING MULTIPLE SCLEROSIS
     Dosage: 2 MIU, EVERY 2D
     Route: 058
     Dates: start: 20070525, end: 20070101
  2. BETASERON [Suspect]
     Dosage: 6 MIU, EVERY 2D
     Route: 058
     Dates: start: 20070101
  3. TOPAMAX [Suspect]
     Indication: MIGRAINE
     Dosage: 100 MG/D, UNK
  4. ZOLOFT [Concomitant]
     Dosage: 50 MG/D, UNK
  5. ZOCOR [Concomitant]
     Dosage: 20 MG/D, UNK
  6. TRAZODONE HCL [Concomitant]
     Dosage: 100 MG/D, UNK

REACTIONS (12)
  - DECREASED APPETITE [None]
  - DIARRHOEA [None]
  - ENTERITIS [None]
  - FATIGUE [None]
  - GASTRIC DISORDER [None]
  - INFLUENZA LIKE ILLNESS [None]
  - INJECTION SITE BRUISING [None]
  - INJECTION SITE HAEMORRHAGE [None]
  - INJECTION SITE PAIN [None]
  - NAUSEA [None]
  - VOMITING [None]
  - WEIGHT DECREASED [None]
